FAERS Safety Report 7138579-1 (Version None)
Quarter: 2010Q4

REPORT INFORMATION
  Report Type: 
  Country: None (occurrence: None)
  Receive Date: 20101201
  Receipt Date: 20101201
  Transmission Date: 20110411
  Serious: Yes (Other)
  Sender: FDA-Public Use
  Company Number: None

PATIENT
  Age: 55 Year
  Sex: Female

DRUGS (2)
  1. ALTACE [Suspect]
     Indication: HYPERTENSION
     Dosage: 10MG 1 Q DAY ORAL
     Route: 048
  2. COZAAR [Suspect]
     Indication: HYPERTENSION
     Dosage: 30MG 1 Q DAY

REACTIONS (2)
  - COUGH [None]
  - HEADACHE [None]
